FAERS Safety Report 6930703-6 (Version None)
Quarter: 2010Q3

REPORT INFORMATION
  Report Type: 
  Country: None (occurrence: None)
  Receive Date: 20100810
  Receipt Date: 20090615
  Transmission Date: 20110219
  Serious: Yes (Other)
  Sender: FDA-Public Use
  Company Number: 2009207190

PATIENT
  Sex: Female
  Weight: 47.2 kg

DRUGS (2)
  1. FLAGYL [Suspect]
     Indication: HELICOBACTER INFECTION
     Dates: start: 20030101
  2. BIAXIN [Concomitant]

REACTIONS (5)
  - ACID BASE BALANCE ABNORMAL [None]
  - ATAXIA [None]
  - DIZZINESS [None]
  - HELICOBACTER INFECTION [None]
  - WEIGHT DECREASED [None]
